FAERS Safety Report 7957469-5 (Version None)
Quarter: 2011Q4

REPORT INFORMATION
  Report Type: 
  Country: None (occurrence: None)
  Receive Date: 20111130
  Receipt Date: 20111121
  Transmission Date: 20120403
  Serious: Yes (Other)
  Sender: FDA-Public Use
  Company Number: 1118011

PATIENT
  Age: 78 Year
  Sex: Female

DRUGS (3)
  1. CYCLOPHOSPHAMIDE [Suspect]
     Indication: BREAST CANCER STAGE II
     Dosage: INTRAVENOUS DRIP
     Route: 041
  2. METHOTREXATE [Suspect]
     Indication: BREAST CANCER STAGE II
     Dosage: INTRAVENOUS DRIP
     Route: 041
  3. FLUOROURACIL [Suspect]
     Indication: BREAST CANCER STAGE II
     Dosage: INTRAVENOUS DRIP
     Route: 041

REACTIONS (1)
  - TOXIC SKIN ERUPTION [None]
